FAERS Safety Report 9206443 (Version 1)
Quarter: 2013Q2

REPORT INFORMATION
  Report Type: Spontaneous
  Country: US (occurrence: None)
  Receive Date: 20130401
  Receipt Date: 20130401
  Transmission Date: 20140414
  Serious: Yes (Life-Threatening)
  Sender: FDA-Public Use
  Company Number: 20130155

PATIENT
  Sex: 0

DRUGS (1)
  1. EPINEPHRINE INJECTION, USP (1071-25) 1 MG/ML [Suspect]
     Indication: ANAPHYLACTIC SHOCK

REACTIONS (1)
  - No therapeutic response [None]
